FAERS Safety Report 25894328 (Version 2)
Quarter: 2025Q4

REPORT INFORMATION
  Report Type: Report from Study
  Country: US (occurrence: US)
  Receive Date: 20251008
  Receipt Date: 20251028
  Transmission Date: 20260118
  Serious: Yes (Hospitalization)
  Sender: ABBVIE
  Company Number: US-ABBVIE-6489386

PATIENT
  Age: 48 Year
  Sex: Female

DRUGS (1)
  1. RINVOQ [Suspect]
     Active Substance: UPADACITINIB
     Indication: Psoriatic arthropathy
     Route: 048
     Dates: end: 20250916

REACTIONS (5)
  - Gastrointestinal disorder [Not Recovered/Not Resolved]
  - Abdominal discomfort [Unknown]
  - Incision site discharge [Recovered/Resolved]
  - Drug ineffective [Unknown]
  - Incision site discharge [Unknown]

NARRATIVE: CASE EVENT DATE: 20250101
